FAERS Safety Report 7490948-6 (Version None)
Quarter: 2011Q2

REPORT INFORMATION
  Report Type: 
  Country: None (occurrence: None)
  Receive Date: 20110517
  Receipt Date: 20110517
  Transmission Date: 20111010
  Serious: Yes (Other)
  Sender: FDA-Public Use
  Company Number: None

PATIENT
  Age: 56 Year
  Sex: Female
  Weight: 49.8957 kg

DRUGS (1)
  1. VYVANSE [Suspect]
     Indication: ATTENTION DEFICIT/HYPERACTIVITY DISORDER
     Dosage: 30 MG ONCE DAILY PO
     Route: 048
     Dates: start: 20101201, end: 20110516

REACTIONS (7)
  - PAIN IN EXTREMITY [None]
  - OEDEMA PERIPHERAL [None]
  - SCREAMING [None]
  - ABASIA [None]
  - MUSCLE SPASMS [None]
  - DYSSTASIA [None]
  - BLOOD PRESSURE INCREASED [None]
